FAERS Safety Report 10413257 (Version 1)
Quarter: 2014Q3

REPORT INFORMATION
  Report Type: Report from Study
  Country: US (occurrence: US)
  Receive Date: 20140827
  Receipt Date: 20140827
  Transmission Date: 20150326
  Serious: Yes (Other)
  Sender: FDA-Public Use
  Company Number: US-SA-2014SA112374

PATIENT
  Age: 45 Year
  Sex: Female

DRUGS (5)
  1. AMPYRA [Suspect]
     Active Substance: DALFAMPRIDINE
     Indication: GAIT DISTURBANCE
     Route: 048
     Dates: start: 201301
  2. AMPYRA [Suspect]
     Active Substance: DALFAMPRIDINE
     Indication: MULTIPLE SCLEROSIS
     Route: 048
     Dates: start: 201301
  3. AUBAGIO [Suspect]
     Active Substance: TERIFLUNOMIDE
     Indication: MULTIPLE SCLEROSIS
     Route: 048
  4. COPAXONE [Suspect]
     Active Substance: GLATIRAMER ACETATE
     Indication: MULTIPLE SCLEROSIS
     Route: 065
  5. COPAXONE [Suspect]
     Active Substance: GLATIRAMER ACETATE
     Indication: MULTIPLE SCLEROSIS
     Dosage: THREE TIMES WEEKLY
     Route: 065
     Dates: start: 201403

REACTIONS (11)
  - Injection site ulcer [Recovering/Resolving]
  - Injection site bruising [Recovering/Resolving]
  - Diarrhoea [Recovered/Resolved]
  - Osteoporosis [Unknown]
  - Injection site pain [Recovering/Resolving]
  - Erythema [Unknown]
  - Ankle fracture [Recovering/Resolving]
  - Injection site haemorrhage [Recovered/Resolved]
  - Palpitations [Unknown]
  - Contusion [Recovered/Resolved]
  - Dyspnoea [Unknown]

NARRATIVE: CASE EVENT DATE: 201402
